FAERS Safety Report 5562402-X (Version None)
Quarter: 2007Q4

REPORT INFORMATION
  Report Type: 
  Country: None (occurrence: None)
  Receive Date: 20071215
  Receipt Date: 20070516
  Transmission Date: 20080405
  Serious: No
  Sender: FDA-Public Use
  Company Number: US-AMGEN-US225206

PATIENT
  Sex: Female

DRUGS (2)
  1. ARANESP [Suspect]
     Indication: ANAEMIA
     Route: 065
     Dates: start: 20040101, end: 20070501
  2. SYNTHROID [Concomitant]

REACTIONS (3)
  - ABASIA [None]
  - ASTHENIA [None]
  - HAEMOGLOBIN DECREASED [None]
